FAERS Safety Report 23337972 (Version 1)
Quarter: 2023Q4

REPORT INFORMATION
  Report Type: Spontaneous
  Country: US (occurrence: None)
  Receive Date: 20231222
  Receipt Date: 20231222
  Transmission Date: 20240109
  Serious: No
  Sender: FDA-Public Use
  Company Number: None

PATIENT
  Age: 85 Year
  Sex: Female

DRUGS (1)
  1. OJJAARA [Suspect]
     Active Substance: MOMELOTINIB DIHYDROCHLORIDE MONOHYDRATE
     Indication: Myelofibrosis
     Dosage: 100 MG DAILY ORAL?
     Route: 048
     Dates: end: 20231110

REACTIONS (7)
  - Gait inability [None]
  - Memory impairment [None]
  - Asthenia [None]
  - Fatigue [None]
  - Depression [None]
  - Transfusion [None]
  - Tooth extraction [None]

NARRATIVE: CASE EVENT DATE: 20231221
